FAERS Safety Report 11200063 (Version 2)
Quarter: 2015Q4

REPORT INFORMATION
  Report Type: Report from Study
  Country: IT (occurrence: IT)
  Receive Date: 20150618
  Receipt Date: 20151210
  Transmission Date: 20160304
  Serious: Yes (Other)
  Sender: FDA-Public Use
  Company Number: IT-BRISTOL-MYERS SQUIBB COMPANY-BMS-2015-037516

PATIENT
  Weight: 75 kg

DRUGS (9)
  1. NIVOLUMAB [Suspect]
     Active Substance: NIVOLUMAB
     Indication: MALIGNANT MELANOMA
     Dosage: UNK
     Route: 065
     Dates: start: 20150515
  2. NIVOLUMAB [Suspect]
     Active Substance: NIVOLUMAB
     Dosage: UNK
     Route: 065
     Dates: start: 20150918, end: 20150918
  3. NIVOLUMAB [Suspect]
     Active Substance: NIVOLUMAB
     Dosage: UNK
     Route: 065
     Dates: start: 20150612, end: 20150612
  4. NIVOLUMAB [Suspect]
     Active Substance: NIVOLUMAB
     Dosage: UNK
     Route: 065
     Dates: start: 20150710, end: 20150710
  5. NIVOLUMAB [Suspect]
     Active Substance: NIVOLUMAB
     Dosage: UNK
     Route: 065
     Dates: start: 20150807, end: 20150807
  6. NIVOLUMAB [Suspect]
     Active Substance: NIVOLUMAB
     Dosage: UNK
     Route: 065
     Dates: start: 20150724, end: 20150724
  7. NIVOLUMAB [Suspect]
     Active Substance: NIVOLUMAB
     Dosage: UNK
     Route: 065
     Dates: start: 20150710, end: 20150710
  8. NIVOLUMAB [Suspect]
     Active Substance: NIVOLUMAB
     Dosage: UNK
     Route: 065
     Dates: start: 20150904, end: 20150904
  9. NIVOLUMAB [Suspect]
     Active Substance: NIVOLUMAB
     Dosage: UNK
     Route: 065
     Dates: start: 20150821, end: 20150821

REACTIONS (3)
  - Creatinine renal clearance abnormal [Unknown]
  - Haemoptysis [Unknown]
  - Fatigue [Unknown]

NARRATIVE: CASE EVENT DATE: 20150515
